FAERS Safety Report 24146825 (Version 1)
Quarter: 2024Q3

REPORT INFORMATION
  Report Type: Spontaneous
  Country: FR (occurrence: FR)
  Receive Date: 20240729
  Receipt Date: 20240729
  Transmission Date: 20241017
  Serious: Yes (Life-Threatening, Other)
  Sender: AUROBINDO
  Company Number: FR-AFSSAPS-AN2024000920

PATIENT
  Age: 53 Year
  Sex: Female
  Weight: 48.5 kg

DRUGS (8)
  1. LAMOTRIGINE [Suspect]
     Active Substance: LAMOTRIGINE
     Indication: Epilepsy
     Dosage: 400 MILLIGRAM, ONCE A DAY
     Route: 048
     Dates: end: 20240605
  2. MIRTAZAPINE [Suspect]
     Active Substance: MIRTAZAPINE
     Indication: Product used for unknown indication
     Dosage: 30 MILLIGRAM, ONCE A DAY
     Route: 048
     Dates: end: 20240605
  3. VALPROATE SODIUM [Suspect]
     Active Substance: VALPROATE SODIUM
     Indication: Epilepsy
     Dosage: 3 DOSAGE FORM, ONCE A DAY
     Route: 048
  4. UMECLIDINIUM BROMIDE\VILANTEROL TRIFENATATE [Concomitant]
     Active Substance: UMECLIDINIUM BROMIDE\VILANTEROL TRIFENATATE
     Indication: Product used for unknown indication
     Dosage: 1 DOSAGE FORM, ONCE A DAY
     Dates: end: 20240605
  5. DESOGESTREL [Concomitant]
     Active Substance: DESOGESTREL
     Indication: Product used for unknown indication
     Dosage: 75 MICROGRAM, ONCE A DAY
     Route: 048
     Dates: end: 20240605
  6. Nicotine eg [Concomitant]
     Indication: Product used for unknown indication
     Dosage: 1 DOSAGE FORM, ONCE A DAY
     Route: 003
     Dates: end: 20240605
  7. NITROFURANTOIN [Concomitant]
     Active Substance: NITROFURANTOIN
     Indication: Product used for unknown indication
     Dosage: 3 DOSAGE FORM, ONCE A DAY
     Route: 048
     Dates: start: 20240603, end: 20240605
  8. BETAHISTINE HYDROCHLORIDE [Concomitant]
     Active Substance: BETAHISTINE HYDROCHLORIDE
     Indication: Product used for unknown indication
     Dosage: 48 MILLIGRAM, ONCE A DAY
     Route: 048
     Dates: end: 20240605

REACTIONS (3)
  - Coma [Recovering/Resolving]
  - Status epilepticus [Recovering/Resolving]
  - Anticonvulsant drug level increased [Recovering/Resolving]

NARRATIVE: CASE EVENT DATE: 20240605
